FAERS Safety Report 4934911-5 (Version None)
Quarter: 2006Q1

REPORT INFORMATION
  Report Type: 
  Country: None (occurrence: None)
  Receive Date: 20060306
  Receipt Date: 20060306
  Transmission Date: 20060701
  Serious: Yes (Disabling)
  Sender: FDA-Public Use
  Company Number: None

PATIENT
  Age: 42 Year
  Sex: Male

DRUGS (2)
  1. MORPHINE [Suspect]
     Indication: FIBULA FRACTURE
     Dates: start: 20060220, end: 20060220
  2. MORPHINE [Suspect]
     Indication: TIBIA FRACTURE
     Dates: start: 20060220, end: 20060220

REACTIONS (2)
  - ERYTHEMA [None]
  - PRURITUS [None]
